FAERS Safety Report 6617727-3 (Version None)
Quarter: 2010Q1

REPORT INFORMATION
  Report Type: 
  Country: None (occurrence: None)
  Receive Date: 20100302
  Receipt Date: 20100219
  Transmission Date: 20100710
  Serious: Yes (Disabling)
  Sender: FDA-Public Use
  Company Number: 2009AP002710

PATIENT
  Age: 42 Year
  Sex: Female

DRUGS (2)
  1. SERTRALINE HYDROCHLORIDE [Suspect]
     Dosage: PO
     Route: 048
  2. IBUPROFEN [Suspect]
     Indication: ARTHRALGIA
     Dosage: PO
     Route: 048

REACTIONS (2)
  - IDIOSYNCRATIC DRUG REACTION [None]
  - OSTEONECROSIS [None]
